FAERS Safety Report 9775253 (Version 1)
Quarter: 2013Q4

REPORT INFORMATION
  Report Type: Report from Study
  Country: US (occurrence: US)
  Receive Date: 20131220
  Receipt Date: 20131220
  Transmission Date: 20140711
  Serious: Yes (Other)
  Sender: FDA-Public Use
  Company Number: US-ROCHE-1319315

PATIENT
  Sex: Female

DRUGS (6)
  1. XOLAIR [Suspect]
     Indication: ASTHMA
     Route: 065
  2. HYDROCORTISONE [Concomitant]
     Route: 065
  3. ALVESCO [Concomitant]
     Dosage: 160MCG, 1 PUFF BID
     Route: 065
  4. ZYRTEC [Concomitant]
     Route: 065
  5. BENADRYL (UNITED STATES) [Concomitant]
     Dosage: AS NEEDED
     Route: 065
  6. NORTRIPTYLINE [Concomitant]
     Route: 065

REACTIONS (5)
  - Local reaction [Unknown]
  - Dyspnoea [Unknown]
  - Nausea [Unknown]
  - Fatigue [Unknown]
  - Nasal mucosal discolouration [Unknown]
